FAERS Safety Report 18967919 (Version 1)
Quarter: 2021Q1

REPORT INFORMATION
  Report Type: Spontaneous
  Country: US (occurrence: US)
  Receive Date: 20210303
  Receipt Date: 20210303
  Transmission Date: 20210420
  Serious: Yes (Death)
  Sender: FDA-Public Use
  Company Number: None

PATIENT
  Age: 75 Year
  Sex: Male
  Weight: 74.84 kg

DRUGS (1)
  1. REMDESIVIR. [Suspect]
     Active Substance: REMDESIVIR
     Dosage: ?          OTHER DOSE:200MGX1,100MG;OTHER ROUTE:IVPB?
     Dates: start: 20210119, end: 20210122

REACTIONS (1)
  - Death [None]

NARRATIVE: CASE EVENT DATE: 20210203
